FAERS Safety Report 23471121 (Version 1)
Quarter: 2024Q1

REPORT INFORMATION
  Report Type: Spontaneous
  Country: CA (occurrence: CA)
  Receive Date: 20240202
  Receipt Date: 20240202
  Transmission Date: 20240410
  Serious: Yes (Hospitalization, Other)
  Sender: FDA-Public Use
  Company Number: CA-JNJFOC-20240162347

PATIENT
  Age: 62 Year
  Sex: Male

DRUGS (4)
  1. INVEGA TRINZA [Suspect]
     Active Substance: PALIPERIDONE PALMITATE
     Indication: Schizophrenia
     Dosage: ALSO INDICATES EVERY MONTH
     Route: 030
  2. INVEGA TRINZA [Suspect]
     Active Substance: PALIPERIDONE PALMITATE
     Indication: Dementia
  3. INVEGA TRINZA [Suspect]
     Active Substance: PALIPERIDONE PALMITATE
  4. ABILIFY [Suspect]
     Active Substance: ARIPIPRAZOLE
     Indication: Product used for unknown indication
     Route: 065

REACTIONS (13)
  - Cardiac arrest [Unknown]
  - Hospitalisation [Unknown]
  - Visual impairment [Unknown]
  - Back pain [Unknown]
  - Respiratory disorder [Unknown]
  - Spinal pain [Unknown]
  - Bone pain [Unknown]
  - Pain in extremity [Unknown]
  - Asthenopia [Unknown]
  - Incorrect dose administered [Unknown]
  - Off label use [Unknown]
  - Headache [Unknown]
  - Dizziness [Unknown]
